FAERS Safety Report 13063111 (Version 1)
Quarter: 2016Q4

REPORT INFORMATION
  Report Type: Spontaneous
  Country: US (occurrence: US)
  Receive Date: 20161227
  Receipt Date: 20161227
  Transmission Date: 20170207
  Serious: No
  Sender: FDA-Public Use
  Company Number: US-TEVA-697714USA

PATIENT
  Sex: Male

DRUGS (1)
  1. TESTOSTERONE. [Suspect]
     Active Substance: TESTOSTERONE
     Dates: start: 20160505

REACTIONS (4)
  - Discomfort [Unknown]
  - Pain [Unknown]
  - Burning sensation [Unknown]
  - Erythema [Unknown]
